FAERS Safety Report 8375888-2 (Version None)
Quarter: 2012Q2

REPORT INFORMATION
  Report Type: 
  Country: None (occurrence: None)
  Receive Date: 20120522
  Receipt Date: 20120515
  Transmission Date: 20120825
  Serious: Yes (Other)
  Sender: FDA-Public Use
  Company Number: US-BAYER-200943573NA

PATIENT
  Age: 55 Year
  Sex: Male
  Weight: 97.506 kg

DRUGS (37)
  1. TRASYLOL [Suspect]
     Dosage: 200ML, PUMP PRIME
     Route: 042
     Dates: start: 20040210, end: 20040210
  2. ASPIRIN [Concomitant]
     Route: 048
  3. AMIODARONE HCL [Concomitant]
     Dosage: UNK
     Route: 048
  4. MAGNESIUM SULFATE [Concomitant]
     Dosage: 2 G, BID
     Route: 042
     Dates: start: 20040210, end: 20040210
  5. LISINOPRIL [Concomitant]
     Dosage: 20 MG, UNK
  6. ALPRAZOLAM [Concomitant]
     Dosage: 0.5 MG, BID
  7. MILRINONE [Concomitant]
  8. METOPROLOL [Concomitant]
     Route: 048
  9. PLATELETS [Concomitant]
     Dosage: 2 U, UNK
     Dates: start: 20040210
  10. DOPAMINE HCL [Concomitant]
  11. CLONIDINE [Concomitant]
     Route: 048
  12. NEXIUM [Concomitant]
     Route: 048
  13. SIMVASTATIN [Concomitant]
     Route: 048
  14. RED BLOOD CELLS [Concomitant]
     Dosage: 4 U, UNK
     Route: 042
     Dates: start: 20040210
  15. CITALOPRAM HYDROBROMIDE [Concomitant]
  16. DILAUDID [Concomitant]
     Dosage: 1.5 MG, UNK
     Route: 042
     Dates: start: 20040210
  17. INSULIN [Concomitant]
  18. VASOPRESSIN [Concomitant]
     Dosage: UNK
     Route: 042
     Dates: start: 20040210
  19. LABETALOL HCL [Concomitant]
     Dosage: UNK
     Route: 042
     Dates: start: 20040210
  20. TRASYLOL [Suspect]
     Indication: CARDIAC OPERATION
     Dosage: 200 ML, OVER 30 MINUTES
     Route: 042
     Dates: start: 20040210, end: 20040210
  21. TRASYLOL [Suspect]
     Indication: AORTIC DISSECTION
     Dosage: 50ML/HR
     Route: 042
     Dates: start: 20040210, end: 20040210
  22. AMIODARONE HCL [Concomitant]
     Dosage: 150 MG, BOLUS THEN DRIP
     Route: 042
     Dates: start: 20040210
  23. ATROPINE [Concomitant]
     Dosage: 0.4 MG, UNK
     Route: 042
     Dates: start: 20040210, end: 20040210
  24. PROTAMINE SULFATE [Concomitant]
     Dosage: 50 MG, BID
     Route: 042
     Dates: start: 20040210, end: 20040210
  25. HEPARIN [Concomitant]
     Dosage: 5000 U, UNK
     Route: 042
     Dates: start: 20040210, end: 20040210
  26. LEXAPRO [Concomitant]
     Dosage: 10 MG, UNK
  27. BUMEX [Concomitant]
  28. AMLODIPINE BESYLATE [Concomitant]
     Route: 048
  29. LIDOCAINE [Concomitant]
     Dosage: 100 MG, UNK
     Dates: start: 20040210, end: 20040210
  30. PROTAMINE SULFATE [Concomitant]
     Dosage: 200 MG, UNK
     Route: 042
     Dates: start: 20040210, end: 20040210
  31. BUMEX [Concomitant]
     Dosage: 1 MG, PRN
     Dates: start: 20040212
  32. FRESH FROZEN PLASMA [Concomitant]
     Dosage: 4 U, UNK
     Dates: start: 20040210
  33. CATAPRES [Concomitant]
     Dosage: 0.3 MG, UNK
  34. ANCEF [Concomitant]
     Dosage: 2 G, UNK
     Route: 042
     Dates: start: 20040210
  35. EPINEPHRINE [Concomitant]
     Dosage: DRIP
     Route: 042
     Dates: start: 20040210, end: 20040210
  36. BUMEX [Concomitant]
     Dosage: UNK
     Dates: start: 20040211
  37. SOLU-MEDROL [Concomitant]
     Dosage: 125 MG, UNK
     Route: 042
     Dates: start: 20040210

REACTIONS (4)
  - RENAL FAILURE [None]
  - INJURY [None]
  - UNEVALUABLE EVENT [None]
  - PAIN [None]
